FAERS Safety Report 9233356 (Version 1)
Quarter: 2013Q2

REPORT INFORMATION
  Report Type: Spontaneous
  Country: US (occurrence: None)
  Receive Date: 20130415
  Receipt Date: 20130415
  Transmission Date: 20140414
  Serious: Yes (Other)
  Sender: FDA-Public Use
  Company Number: None

PATIENT
  Age: 49 Year
  Sex: Female
  Weight: 75.3 kg

DRUGS (5)
  1. XELODA [Suspect]
     Indication: GASTRIC CANCER STAGE IV
     Route: 048
     Dates: start: 20130327, end: 20130331
  2. PERCOCET [Concomitant]
  3. OMEPRAZOLE [Concomitant]
  4. METHIMAZOLE [Concomitant]
  5. LACTULOSE [Concomitant]

REACTIONS (2)
  - Vomiting [None]
  - Vomiting [None]
